FAERS Safety Report 5107611-9 (Version None)
Quarter: 2006Q3

REPORT INFORMATION
  Report Type: 
  Country: None (occurrence: None)
  Receive Date: 20060731
  Receipt Date: 20060407
  Transmission Date: 20061208
  Serious: No
  Sender: FDA-Public Use
  Company Number: 2006PV011691

PATIENT
  Age: 72 Year
  Sex: Female
  Weight: 73.0291 kg

DRUGS (3)
  1. BYETTA [Suspect]
     Dosage: 5 + 10 + 5 MCG; BID;SC
     Route: 058
     Dates: start: 20050822, end: 20060129
  2. BYETTA [Suspect]
     Dosage: 5 + 10 + 5 MCG; BID;SC
     Route: 058
     Dates: start: 20060130, end: 20060212
  3. BYETTA [Suspect]
     Dosage: 5 + 10 + 5 MCG; BID;SC
     Route: 058
     Dates: start: 20060218

REACTIONS (2)
  - VISUAL DISTURBANCE [None]
  - WEIGHT DECREASED [None]
